FAERS Safety Report 7487054-3 (Version None)
Quarter: 2011Q2

REPORT INFORMATION
  Report Type: 
  Country: None (occurrence: None)
  Receive Date: 20110518
  Receipt Date: 20110509
  Transmission Date: 20111010
  Serious: Yes (Hospitalization)
  Sender: FDA-Public Use
  Company Number: US-BIOGENIDEC-2011BI016437

PATIENT
  Age: 63 Year
  Sex: Male

DRUGS (1)
  1. TYSABRI [Suspect]
     Indication: MULTIPLE SCLEROSIS
     Route: 042
     Dates: start: 20090506

REACTIONS (14)
  - CENTRAL NERVOUS SYSTEM LESION [None]
  - CATARACT [None]
  - ABDOMINAL RIGIDITY [None]
  - HEMIPARESIS [None]
  - BLOOD GLUCOSE INCREASED [None]
  - HEADACHE [None]
  - FATIGUE [None]
  - DECREASED APPETITE [None]
  - CEREBROVASCULAR ACCIDENT [None]
  - HYPERSENSITIVITY [None]
  - BLOOD PRESSURE DECREASED [None]
  - MUSCLE SPASMS [None]
  - GAIT DISTURBANCE [None]
  - CONFUSIONAL STATE [None]
